FAERS Safety Report 6993454 (Version 2)
Quarter: 2013Q1

REPORT INFORMATION
  Report Type: Spontaneous
  Country: US (occurrence: None)
  Receive Date: 20090506
  Receipt Date: 20130114
  Transmission Date: 20140127
  Serious: Yes (Other)
  Sender: FDA-Public Use
  Company Number: 2008AP003489

PATIENT
  Age: 79 Year
  Sex: Male

DRUGS (10)
  1. FLUCONAZOLE [Suspect]
  2. SIMVASTATIN [Suspect]
  3. THIAMINE HYDROCHLORIDE [Concomitant]
  4. FOLIC ACID [Concomitant]
  5. INSULIN [Concomitant]
  6. LISINOPRIL [Concomitant]
  7. TERAZOSIN HYDROCHLORIDE [Concomitant]
  8. TOLTERODINE [Concomitant]
  9. GOSERELIN [Concomitant]
  10. MOMETASONE FUROATE [Concomitant]

REACTIONS (7)
  - Rhabdomyolysis [None]
  - Mastication disorder [None]
  - Dysphagia [None]
  - Drug interaction [None]
  - Speech disorder [None]
  - Haemoglobin decreased [None]
  - Renal failure acute [None]
